FAERS Safety Report 5116713-2 (Version None)
Quarter: 2006Q3

REPORT INFORMATION
  Report Type: 
  Country: None (occurrence: None)
  Receive Date: 20060928
  Receipt Date: 20060920
  Transmission Date: 20061208
  Serious: Yes (Hospitalization)
  Sender: FDA-Public Use
  Company Number: FR-ROCHE-464340

PATIENT
  Age: 33 Year
  Sex: Female

DRUGS (7)
  1. KYTRIL [Suspect]
     Route: 042
     Dates: start: 20050523, end: 20050620
  2. CAMPTOSAR [Suspect]
     Route: 042
     Dates: start: 20050523
  3. CAMPTOSAR [Suspect]
     Route: 042
     Dates: start: 20060711
  4. CALCIUM FOLINATE [Concomitant]
     Route: 042
     Dates: start: 20050523
  5. FLUOROURACIL [Concomitant]
     Route: 042
     Dates: start: 20050523
  6. PRIMPERAN TAB [Concomitant]
  7. SOLU-MEDROL [Concomitant]

REACTIONS (1)
  - HEPATITIS [None]
